FAERS Safety Report 10936685 (Version 1)
Quarter: 2015Q1

REPORT INFORMATION
  Report Type: Spontaneous
  Country: JP (occurrence: JP)
  Receive Date: 20150321
  Receipt Date: 20150321
  Transmission Date: 20150721
  Serious: Yes (Life-Threatening, Hospitalization)
  Sender: FDA-Public Use
  Company Number: JP-EMD SERONO-7322034

PATIENT
  Sex: Female

DRUGS (2)
  1. HMG                                /01277604/ [Concomitant]
     Active Substance: GONADOTROPHIN, CHORIONIC
     Indication: PRODUCT USED FOR UNKNOWN INDICATION
     Route: 064
  2. SEROPHENE [Suspect]
     Active Substance: CLOMIPHENE CITRATE
     Indication: PRODUCT USED FOR UNKNOWN INDICATION
     Route: 064

REACTIONS (8)
  - Premature baby [Unknown]
  - Growth retardation [Unknown]
  - Neonatal hypotension [Unknown]
  - Patent ductus arteriosus [Unknown]
  - Bronchopulmonary dysplasia [Unknown]
  - Anaemia neonatal [Unknown]
  - Neonatal respiratory distress syndrome [Unknown]
  - Jaundice neonatal [Unknown]
